FAERS Safety Report 18926449 (Version 2)
Quarter: 2021Q1

REPORT INFORMATION
  Report Type: Report from Study
  Country: US (occurrence: US)
  Receive Date: 20210223
  Receipt Date: 20210301
  Transmission Date: 20210420
  Serious: Yes (Other)
  Sender: FDA-Public Use
  Company Number: US-TAIHO ONCOLOGY  INC-EU-2021-00209

PATIENT
  Age: 78 Year
  Sex: Male
  Weight: 68.87 kg

DRUGS (18)
  1. LONSURF [Suspect]
     Active Substance: TIPIRACIL HYDROCHLORIDE\TRIFLURIDINE
     Indication: COLON CANCER
     Dosage: CYCLE 1
     Route: 048
     Dates: start: 20201026
  2. DRONABINOL. [Concomitant]
     Active Substance: DRONABINOL
     Route: 048
  3. PHENERGAN [Concomitant]
     Active Substance: PROMETHAZINE HYDROCHLORIDE
     Dosage: EVERY 8 HOURS (STANDARD), AS REQUIRED
     Route: 048
  4. ONDANSETRON [Concomitant]
     Active Substance: ONDANSETRON
     Dosage: 3 TIMES A DAY
     Route: 048
  5. LEUCOVORIN. [Concomitant]
     Active Substance: LEUCOVORIN
     Dosage: LEUCOVORIN IVPB + DEXTROSE 5 % IN WATER 100 ML
  6. MIRALAX [Concomitant]
     Active Substance: POLYETHYLENE GLYCOL 3350
     Dosage: 17 GRAM = 1 PACKET, ORAL, DAILY
     Route: 048
  7. PROMETHAZINE [Concomitant]
     Active Substance: PROMETHAZINE HYDROCHLORIDE
  8. HEPARIN FLUSH [Concomitant]
     Active Substance: HEPARIN SODIUM
     Dosage: 500 UNIT = 5 ML, IV PUSH, AS NEEDED
     Route: 042
  9. FLUOROURACIL. [Concomitant]
     Active Substance: FLUOROURACIL
     Dosage: 750 MG = 15 ML, IV PUSH, ONCE
     Route: 042
  10. POTASSIUM CHLORIDE. [Concomitant]
     Active Substance: POTASSIUM CHLORIDE
     Route: 048
  11. ATROPINE. [Concomitant]
     Active Substance: ATROPINE
     Dosage: 0.4 MG + 1 ML, IV PUSH, ONCE
     Route: 042
  12. IRINOTECAN [Concomitant]
     Active Substance: IRINOTECAN
     Dosage: IRINOTECAN IVPB + DEXTROSE 5 % IN WATER 500 ML
  13. VITAMIN C [Concomitant]
     Active Substance: ASCORBIC ACID
  14. TYLENOL [Concomitant]
     Active Substance: ACETAMINOPHEN
     Dosage: EVERY 6 HOURS (STANDARD), AS REQUIRED
     Route: 048
  15. MULTI VITAMIN [Concomitant]
     Active Substance: VITAMINS
     Route: 048
  16. ONDANSETRON [Concomitant]
     Active Substance: ONDANSETRON
     Dosage: 16 MG = 8 ML, IV PUSH, ONCE
     Route: 042
  17. DEXAMETHASONE. [Concomitant]
     Active Substance: DEXAMETHASONE
     Dosage: 12 MG = 3 ML, IV PUSH, ONCE
     Route: 042
  18. FLUOROURACIL. [Concomitant]
     Active Substance: FLUOROURACIL
     Dosage: IVPB + NORMAL SALINE 0.9% 10 ML

REACTIONS (8)
  - Decreased appetite [Unknown]
  - Constipation [Unknown]
  - Leukopenia [Unknown]
  - Disease progression [Unknown]
  - Microcytic anaemia [Unknown]
  - Pyrexia [Unknown]
  - Hydrocele [Unknown]
  - Abdominal pain [Unknown]
